FAERS Safety Report 13852486 (Version 6)
Quarter: 2018Q1

REPORT INFORMATION
  Report Type: Report from Study
  Country: None (occurrence: US)
  Receive Date: 20170810
  Receipt Date: 20180216
  Transmission Date: 20180508
  Serious: Yes (Other)
  Sender: FDA-Public Use
  Company Number: US-ABBVIE-17K-163-2063193-00

PATIENT
  Age: 86 Year
  Sex: Female
  Weight: 75.36 kg

DRUGS (1)
  1. HUMIRA [Suspect]
     Active Substance: ADALIMUMAB
     Indication: PSORIASIS
     Route: 058

REACTIONS (10)
  - Neoplasm skin [Recovering/Resolving]
  - Gait disturbance [Not Recovered/Not Resolved]
  - Glaucoma [Not Recovered/Not Resolved]
  - Dysphonia [Not Recovered/Not Resolved]
  - Meibomian gland dysfunction [Not Recovered/Not Resolved]
  - Aphonia [Not Recovered/Not Resolved]
  - Memory impairment [Not Recovered/Not Resolved]
  - Viral infection [Not Recovered/Not Resolved]
  - Macular degeneration [Not Recovered/Not Resolved]
  - Post procedural complication [Not Recovered/Not Resolved]

NARRATIVE: CASE EVENT DATE: 201705
